FAERS Safety Report 10272609 (Version 1)
Quarter: 2014Q2

REPORT INFORMATION
  Report Type: Spontaneous
  Country: US (occurrence: None)
  Receive Date: 20140627
  Receipt Date: 20140627
  Transmission Date: 20141212
  Serious: Yes (Other)
  Sender: FDA-Public Use
  Company Number: C14 035 AE

PATIENT
  Age: 40 Year
  Sex: Male

DRUGS (1)
  1. FIRST -MOUTHWASH BLM [Suspect]
     Indication: ORAL MUCOSAL ERUPTION
     Dosage: 15 ML Q2-4H PRN ORALLY
     Route: 048
     Dates: start: 20140607, end: 20140608

REACTIONS (3)
  - Abdominal pain upper [None]
  - Diarrhoea [None]
  - Nausea [None]
